FAERS Safety Report 10996762 (Version 1)
Quarter: 2015Q2

REPORT INFORMATION
  Report Type: Spontaneous
  Country: None (occurrence: None)
  Receive Date: 20150402
  Receipt Date: 20150402
  Transmission Date: 20150821
  Serious: Yes (Other)
  Sender: FDA-Public Use
  Company Number: 2014-US-002463

PATIENT
  Sex: Female

DRUGS (1)
  1. CLOZAPINE USP, ODT (CLOZAPINE, USP) TABLET, MG [Suspect]
     Active Substance: CLOZAPINE
     Dosage: UNK MG, QD, ORAL
     Route: 048

REACTIONS (1)
  - Granulocytopenia [None]
